FAERS Safety Report 5153388-0 (Version None)
Quarter: 2006Q4

REPORT INFORMATION
  Report Type: 
  Country: None (occurrence: None)
  Receive Date: 20061113
  Receipt Date: 20061102
  Transmission Date: 20070319
  Serious: Yes (Hospitalization, Other)
  Sender: FDA-Public Use
  Company Number: HQWYE176302NOV06

PATIENT
  Age: 1 Day
  Sex: Male

DRUGS (3)
  1. INIPOMP (PANTOPRAZOLE, UNSPEC) [Suspect]
     Dosage: 20 MG 1X PER 1 DAY
     Route: 064
  2. PAROXETINE HYDROCHLORIDE [Suspect]
     Dosage: 10 MG 1X PER 1 DAY
     Route: 064
     Dates: end: 20060401
  3. JOSACINE (JOSAMYCIN, TABLET) [Suspect]
     Dosage: DOSE AND FREQUENCY UNSPECIFIED

REACTIONS (2)
  - DRUG EXPOSURE DURING PREGNANCY [None]
  - THROMBOCYTOPENIA NEONATAL [None]
